FAERS Safety Report 7776293-X (Version None)
Quarter: 2011Q3

REPORT INFORMATION
  Report Type: 
  Country: None (occurrence: None)
  Receive Date: 20110926
  Receipt Date: 20110915
  Transmission Date: 20111222
  Serious: Yes (Hospitalization)
  Sender: FDA-Public Use
  Company Number: GB-JNJFOC-20110806854

PATIENT
  Sex: Male

DRUGS (28)
  1. FENTANYL [Concomitant]
     Indication: CANCER PAIN
     Route: 061
     Dates: start: 20110723, end: 20110731
  2. WARFARIN SODIUM [Concomitant]
     Indication: PULMONARY EMBOLISM
     Route: 048
     Dates: start: 20071031, end: 20110805
  3. CANDESARTAN CILEXETIL [Concomitant]
     Indication: HYPERTENSION
     Route: 048
     Dates: start: 20051001
  4. ABIRATERONE ACETATE [Suspect]
     Route: 048
     Dates: start: 20110218, end: 20110225
  5. PREDNISOLONE [Suspect]
     Route: 048
     Dates: start: 20110322, end: 20110623
  6. FUROSEMIDE [Concomitant]
     Indication: OEDEMA
     Route: 048
     Dates: start: 20051001
  7. ABIRATERONE ACETATE [Suspect]
     Route: 048
     Dates: start: 20110126, end: 20110217
  8. PREDNISOLONE [Suspect]
     Route: 048
     Dates: start: 20110126, end: 20110221
  9. BISOPROLOL FUMARATE [Concomitant]
     Indication: HYPERTENSION
     Route: 048
     Dates: start: 20100201
  10. FENTANYL [Concomitant]
     Route: 060
     Dates: start: 20110718, end: 20110801
  11. PREDNISOLONE [Suspect]
     Route: 048
     Dates: start: 20110624, end: 20110708
  12. PREDNISOLONE [Suspect]
     Route: 048
     Dates: start: 20110301, end: 20110307
  13. ZOLADEX [Concomitant]
     Indication: PROSTATE CANCER
     Route: 058
     Dates: start: 20081222
  14. ZOLADEX [Concomitant]
     Route: 058
     Dates: start: 20080908
  15. SERETIDE [Concomitant]
     Indication: CHRONIC OBSTRUCTIVE PULMONARY DISEASE
     Route: 055
     Dates: start: 20110222
  16. ABIRATERONE ACETATE [Suspect]
     Route: 048
     Dates: start: 20110226, end: 20110901
  17. PREDNISOLONE [Suspect]
     Route: 048
     Dates: start: 20110315, end: 20110321
  18. ABIRATERONE ACETATE [Suspect]
     Indication: PROSTATE CANCER METASTATIC
     Route: 048
     Dates: start: 20110907, end: 20110910
  19. PREDNISOLONE [Suspect]
     Indication: PROSTATE CANCER METASTATIC
     Route: 048
     Dates: start: 20110903, end: 20110906
  20. PREDNISOLONE [Suspect]
     Route: 048
     Dates: start: 20110709, end: 20110902
  21. PREDNISOLONE [Suspect]
     Route: 048
     Dates: start: 20110308, end: 20110314
  22. PREDNISOLONE [Suspect]
     Route: 048
     Dates: start: 20110907, end: 20110910
  23. ABIRATERONE ACETATE [Suspect]
     Route: 048
     Dates: start: 20110902, end: 20110906
  24. FENTANYL [Concomitant]
     Route: 061
     Dates: start: 20110801, end: 20110809
  25. ABIRATERONE ACETATE [Suspect]
     Route: 048
     Dates: start: 20110911
  26. PREDNISOLONE [Suspect]
     Route: 048
     Dates: start: 20110222, end: 20110228
  27. PREDNISOLONE [Suspect]
     Route: 048
     Dates: start: 20110911
  28. PREGABALIN [Concomitant]
     Indication: CANCER PAIN
     Route: 048
     Dates: start: 19220624, end: 20110806

REACTIONS (2)
  - PULMONARY EMBOLISM [None]
  - VOMITING [None]
